FAERS Safety Report 10936619 (Version 1)
Quarter: 2015Q1

REPORT INFORMATION
  Report Type: Spontaneous
  Country: US (occurrence: None)
  Receive Date: 20150212
  Receipt Date: 20150212
  Transmission Date: 20150721
  Serious: No
  Sender: FDA-Public Use
  Company Number: TPA2011A00233

PATIENT
  Age: 64 Year
  Sex: Female
  Weight: 86.18 kg

DRUGS (6)
  1. ALLOPURINOL. [Concomitant]
     Active Substance: ALLOPURINOL
  2. LASIX [Concomitant]
     Active Substance: FUROSEMIDE
  3. ULORIC [Suspect]
     Active Substance: FEBUXOSTAT
     Indication: GOUT
     Route: 048
     Dates: start: 20100913, end: 20110117
  4. PROBENECID. [Suspect]
     Active Substance: PROBENECID
     Indication: GOUT
     Dates: start: 20101123, end: 20110117
  5. LEVOXYL (LEVOTHYROXINE SODIUM) [Concomitant]
  6. COLCHICINE. [Concomitant]
     Active Substance: COLCHICINE

REACTIONS (2)
  - Abdominal pain upper [None]
  - Urticaria [None]

NARRATIVE: CASE EVENT DATE: 2010
